FAERS Safety Report 21607300 (Version 6)
Quarter: 2025Q1

REPORT INFORMATION
  Report Type: Spontaneous
  Country: JP (occurrence: JP)
  Receive Date: 20221117
  Receipt Date: 20250313
  Transmission Date: 20250409
  Serious: Yes (Other)
  Sender: ASTELLAS
  Company Number: JP-ASTELLAS-2022JP016774

PATIENT
  Age: 6 Decade
  Sex: Female

DRUGS (6)
  1. XOSPATA [Suspect]
     Active Substance: GILTERITINIB
     Indication: Acute myeloid leukaemia
     Route: 065
  2. XOSPATA [Suspect]
     Active Substance: GILTERITINIB
     Route: 048
  3. XOSPATA [Suspect]
     Active Substance: GILTERITINIB
     Route: 065
  4. XOSPATA [Suspect]
     Active Substance: GILTERITINIB
     Route: 065
  5. XOSPATA [Suspect]
     Active Substance: GILTERITINIB
     Route: 065
  6. CYCLOPHOSPHAMIDE [Concomitant]
     Active Substance: CYCLOPHOSPHAMIDE
     Indication: Product used for unknown indication
     Route: 065

REACTIONS (1)
  - Graft versus host disease in gastrointestinal tract [Recovered/Resolved]
